FAERS Safety Report 5643965-2 (Version None)
Quarter: 2008Q1

REPORT INFORMATION
  Report Type: 
  Country: None (occurrence: None)
  Receive Date: 20080226
  Receipt Date: 20080213
  Transmission Date: 20080703
  Serious: Yes (Hospitalization)
  Sender: FDA-Public Use
  Company Number: 237923K07USA

PATIENT
  Age: 67 Year
  Sex: Female
  Weight: 109.7705 kg

DRUGS (8)
  1. REBIF [Suspect]
     Indication: MULTIPLE SCLEROSIS
     Dosage: 44 MCG, 3 IN 1 WEEKS, SUBCUTANEOUS
     Route: 058
     Dates: start: 20070529
  2. ENABLEX DARIFENACIN) [Concomitant]
  3. ALPHAGAN [Concomitant]
  4. VITAMIN D [Concomitant]
  5. CALCIUM (CALCIUM-SANDOZ) [Concomitant]
  6. NEXIUM [Concomitant]
  7. LIPITOR [Concomitant]
  8. LOTREL [Concomitant]

REACTIONS (2)
  - BLOOD GLUCOSE INCREASED [None]
  - PARATHYROID TUMOUR [None]
